FAERS Safety Report 6577312-9 (Version None)
Quarter: 2010Q1

REPORT INFORMATION
  Report Type: 
  Country: None (occurrence: None)
  Receive Date: 20100210
  Receipt Date: 20100201
  Transmission Date: 20100710
  Serious: Yes (Death, Life-Threatening, Hospitalization)
  Sender: FDA-Public Use
  Company Number: US-ROCHE-670376

PATIENT
  Age: 65 Year
  Sex: Male

DRUGS (2)
  1. BEVACIZUMAB [Suspect]
     Dosage: UNK
     Route: 065
     Dates: start: 20090224
  2. CAPECITABINE [Suspect]
     Dosage: 4000 MG, QD
     Route: 065
     Dates: start: 20090224

REACTIONS (4)
  - DEATH [None]
  - DEHYDRATION [None]
  - FAILURE TO THRIVE [None]
  - MENTAL STATUS CHANGES [None]
